FAERS Safety Report 8880220 (Version 2)
Quarter: 2012Q4

REPORT INFORMATION
  Report Type: 
  Country: DE (occurrence: DE)
  Receive Date: 20121101
  Receipt Date: 20121129
  Transmission Date: 20130627
  Serious: Yes (Life-Threatening, Hospitalization)
  Sender: FDA-Public Use
  Company Number: PHHY2012DE098814

PATIENT
  Age: 60 Year
  Sex: Male
  Weight: 150 kg

DRUGS (1)
  1. GLIVEC [Suspect]
     Indication: CHRONIC MYELOID LEUKAEMIA
     Dosage: 400 mg/d
     Route: 048

REACTIONS (1)
  - Necrotising fasciitis [Recovering/Resolving]
